FAERS Safety Report 15729657 (Version 8)
Quarter: 2021Q2

REPORT INFORMATION
  Report Type: Report from Study
  Country: CA (occurrence: CA)
  Receive Date: 20181217
  Receipt Date: 20210506
  Transmission Date: 20210716
  Serious: Yes (Other)
  Sender: FDA-Public Use
  Company Number: CA-SAKK-2018SA287514AA

PATIENT
  Age: 57 Year
  Sex: Female

DRUGS (16)
  1. SYNTHROID [Concomitant]
     Active Substance: LEVOTHYROXINE SODIUM
     Dosage: 50 UG, QD,MAGIC MOUTH WASH
     Route: 048
  2. SYNTHROID [Concomitant]
     Active Substance: LEVOTHYROXINE SODIUM
     Dosage: 50 UG, QD
  3. IRON [Concomitant]
     Active Substance: IRON
     Route: 065
  4. HYDROQUINONE. [Concomitant]
     Active Substance: HYDROQUINONE
  5. VANDETANIB. [Suspect]
     Active Substance: VANDETANIB
     Indication: MEDULLARY THYROID CANCER
     Dosage: 300 MG, QD
     Route: 048
     Dates: start: 20180918, end: 20181126
  6. VITAMIN D NOS [Concomitant]
     Active Substance: VITAMIN D NOS
     Indication: ANTIINFLAMMATORY THERAPY
     Dosage: 10 IU, QD
     Route: 048
  7. DILAUDID [Concomitant]
     Active Substance: HYDROMORPHONE HYDROCHLORIDE
     Dosage: UNK, PRN
     Route: 065
  8. VANDETANIB. [Suspect]
     Active Substance: VANDETANIB
     Dosage: 300 MG, QD
     Route: 048
     Dates: start: 20181205, end: 20210428
  9. LOPERAMIDE [Concomitant]
     Active Substance: LOPERAMIDE
  10. BETADERM [Concomitant]
     Active Substance: BETAMETHASONE VALERATE
  11. JAMP SENNA S [Concomitant]
  12. CALCIUM [Concomitant]
     Active Substance: CALCIUM
     Dosage: 500 MG, QD
     Route: 048
  13. ZOLEDRONIC ACID [Suspect]
     Active Substance: ZOLEDRONIC ACID
     Dosage: UNK UNK, Q3M,INFUSIONS
     Route: 065
  14. CYCLOBENZAPRINE. [Concomitant]
     Active Substance: CYCLOBENZAPRINE
     Dosage: 10 MG, HS
     Route: 048
  15. PANTOPRAZOLE [Concomitant]
     Active Substance: PANTOPRAZOLE
     Dosage: 40 MG, QD
     Route: 048
  16. DOCUSATE [Concomitant]
     Active Substance: DOCUSATE

REACTIONS (16)
  - Condition aggravated [Not Recovered/Not Resolved]
  - Fatigue [Unknown]
  - Therapy interrupted [Unknown]
  - Constipation [Recovering/Resolving]
  - Liver disorder [Unknown]
  - Diarrhoea [Recovered/Resolved]
  - Anal injury [Unknown]
  - Anal haemorrhage [Unknown]
  - Alopecia [Not Recovered/Not Resolved]
  - Hair texture abnormal [Not Recovered/Not Resolved]
  - Musculoskeletal chest pain [Recovered/Resolved]
  - Trichorrhexis [Not Recovered/Not Resolved]
  - Drug ineffective [Unknown]
  - Tooth infection [Unknown]
  - Vomiting [Recovered/Resolved]
  - Diarrhoea [Not Recovered/Not Resolved]

NARRATIVE: CASE EVENT DATE: 20181005
